FAERS Safety Report 12381476 (Version 2)
Quarter: 2016Q2

REPORT INFORMATION
  Report Type: Spontaneous
  Country: NL (occurrence: NL)
  Receive Date: 20160518
  Receipt Date: 20160523
  Transmission Date: 20160815
  Serious: Yes (Death)
  Sender: FDA-Public Use
  Company Number: NL-ROCHE-1759506

PATIENT
  Sex: Female
  Weight: 53 kg

DRUGS (12)
  1. DIPYRIDAMOL [Concomitant]
     Dosage: WITH REGULATED RELEASE
     Route: 065
  2. MORPHINE PUMP [Concomitant]
     Active Substance: MORPHINE
  3. METOCLOPRAMIDE. [Concomitant]
     Active Substance: METOCLOPRAMIDE
     Route: 065
  4. GLIMEPIRIDE. [Concomitant]
     Active Substance: GLIMEPIRIDE
     Route: 065
  5. KADCYLA [Suspect]
     Active Substance: ADO-TRASTUZUMAB EMTANSINE
     Indication: BREAST CANCER
     Dosage: FIFTH LINE METASTASIZED BREAST CANCER TREATMENT
     Route: 042
     Dates: start: 20150820
  6. ESOMEPRAZOLE [Concomitant]
     Active Substance: ESOMEPRAZOLE
     Dosage: 2X20
     Route: 065
  7. RISEDRONIC ACID [Concomitant]
     Active Substance: RISEDRONIC ACID
  8. PARACETAMOL [Concomitant]
     Active Substance: ACETAMINOPHEN
  9. FLUCLOXACILLIN [Concomitant]
     Active Substance: FLUCLOXACILLIN
     Dosage: 8G/24 HOURS PER SYRINGEPUMP
     Route: 065
  10. ACETYLSALICYLIC ACID [Concomitant]
     Active Substance: ASPIRIN
     Route: 065
  11. METFORMIN [Concomitant]
     Active Substance: METFORMIN HYDROCHLORIDE
     Route: 065
  12. DEXAMETHASONE. [Concomitant]
     Active Substance: DEXAMETHASONE
     Route: 065

REACTIONS (1)
  - Device related sepsis [Fatal]
